FAERS Safety Report 20429861 (Version 1)
Quarter: 2022Q1

REPORT INFORMATION
  Report Type: Spontaneous
  Country: US (occurrence: None)
  Receive Date: 20220203
  Receipt Date: 20220203
  Transmission Date: 20220423
  Serious: No
  Sender: FDA-Public Use
  Company Number: None

PATIENT
  Age: 60 Year
  Sex: Female
  Weight: 100.2 kg

DRUGS (1)
  1. PACLITAXEL [Suspect]
     Active Substance: PACLITAXEL
     Dates: start: 20220202

REACTIONS (8)
  - Nausea [None]
  - Flushing [None]
  - Ocular hyperaemia [None]
  - Swelling face [None]
  - Decreased appetite [None]
  - Diarrhoea [None]
  - Fatigue [None]
  - Infusion related reaction [None]

NARRATIVE: CASE EVENT DATE: 20220202
